FAERS Safety Report 9157806 (Version 1)
Quarter: 2013Q1

REPORT INFORMATION
  Report Type: Spontaneous
  Country: US (occurrence: None)
  Receive Date: 20130311
  Receipt Date: 20130311
  Transmission Date: 20140127
  Serious: Yes (Other)
  Sender: FDA-Public Use
  Company Number: None

PATIENT
  Age: 48 Year
  Sex: Female
  Weight: 77.11 kg

DRUGS (2)
  1. ESCITALOPRAM 10MG AUROBIUDO PHARMA [Suspect]
     Indication: ANXIETY
     Route: 048
     Dates: start: 20130101, end: 20130307
  2. ESCITALOPRAM 10MG AUROBIUDO PHARMA [Suspect]
     Indication: PANIC DISORDER
     Route: 048
     Dates: start: 20130101, end: 20130307

REACTIONS (5)
  - Product substitution issue [None]
  - Panic attack [None]
  - Agoraphobia [None]
  - Hypertension [None]
  - Drug ineffective [None]
